FAERS Safety Report 23410131 (Version 1)
Quarter: 2024Q1

REPORT INFORMATION
  Report Type: Spontaneous
  Country: US (occurrence: None)
  Receive Date: 20240116
  Receipt Date: 20240116
  Transmission Date: 20240410
  Serious: Yes (Other)
  Sender: FDA-Public Use
  Company Number: None

PATIENT
  Age: 49 Year
  Sex: Male

DRUGS (1)
  1. DUPIXENT [Suspect]
     Active Substance: DUPILUMAB
     Dosage: OTHER FREQUENCY : EVERY 2 WEEKS;?
     Dates: start: 20231109, end: 20231130

REACTIONS (8)
  - Skin burning sensation [None]
  - Abdominal pain upper [None]
  - Nausea [None]
  - Blindness transient [None]
  - Myalgia [None]
  - Pain [None]
  - Blood glucose decreased [None]
  - Therapy cessation [None]

NARRATIVE: CASE EVENT DATE: 20231113
